FAERS Safety Report 22602375 (Version 1)
Quarter: 2023Q2

REPORT INFORMATION
  Report Type: Report from Study
  Country: US (occurrence: US)
  Receive Date: 20230614
  Receipt Date: 20230614
  Transmission Date: 20230721
  Serious: Yes (Other)
  Sender: FDA-Public Use
  Company Number: US-INCYTE CORPORATION-2023IN006153

PATIENT

DRUGS (1)
  1. JAKAFI [Suspect]
     Active Substance: RUXOLITINIB
     Indication: Polycythaemia vera
     Dosage: 5 MILLIGRAM, BID
     Route: 065

REACTIONS (6)
  - Rectal haemorrhage [Unknown]
  - Gingival bleeding [Unknown]
  - Haemorrhoids [Unknown]
  - Blood cholesterol increased [Unknown]
  - Weight increased [Unknown]
  - Constipation [Unknown]
